FAERS Safety Report 8614013-7 (Version None)
Quarter: 2012Q3

REPORT INFORMATION
  Report Type: 
  Country: None (occurrence: None)
  Receive Date: 20120823
  Receipt Date: 20120817
  Transmission Date: 20120928
  Serious: No
  Sender: FDA-Public Use
  Company Number: US-PFIZER INC-2012184077

PATIENT
  Sex: Female

DRUGS (2)
  1. PREMARIN [Suspect]
     Dosage: UNK
  2. NORVASC [Suspect]
     Indication: HYPERTENSION
     Dosage: UNK

REACTIONS (5)
  - ASTHMA [None]
  - BACK INJURY [None]
  - INJURY [None]
  - BODY TEMPERATURE INCREASED [None]
  - HYPERSENSITIVITY [None]
